FAERS Safety Report 23125347 (Version 1)
Quarter: 2023Q4

REPORT INFORMATION
  Report Type: Other
  Country: None (occurrence: US)
  Receive Date: 20231030
  Receipt Date: 20231030
  Transmission Date: 20240110
  Serious: Yes (Hospitalization, Other)
  Sender: FDA-Public Use
  Company Number: US-Omnivium Pharmaceuticals LLC-2147575

PATIENT
  Age: 28 Year
  Sex: Male

DRUGS (1)
  1. NUMBRINO [Suspect]
     Active Substance: COCAINE HYDROCHLORIDE
     Indication: Product used for unknown indication
     Route: 042

REACTIONS (2)
  - Long QT syndrome [Recovered/Resolved]
  - Deafness neurosensory [Recovered/Resolved]
